FAERS Safety Report 9734845 (Version 4)
Quarter: 2014Q1

REPORT INFORMATION
  Report Type: Spontaneous
  Country: US (occurrence: US)
  Receive Date: 20131206
  Receipt Date: 20140207
  Transmission Date: 20141002
  Serious: Yes (Hospitalization, Other)
  Sender: FDA-Public Use
  Company Number: US-CELGENEUS-163-21880-13102948

PATIENT
  Age: 85 Year
  Sex: Female
  Weight: 64.92 kg

DRUGS (16)
  1. REVLIMID [Suspect]
     Indication: MYELODYSPLASTIC SYNDROME
     Dosage: 10 MILLIGRAM
     Route: 048
     Dates: start: 201109
  2. REVLIMID [Suspect]
     Dosage: 25 MILLIGRAM
     Route: 048
     Dates: start: 20130726
  3. REVLIMID [Suspect]
     Dosage: 15 MILLIGRAM
     Route: 048
     Dates: start: 20131014, end: 20131031
  4. REVLIMID [Suspect]
     Dosage: 25 MILLIGRAM
     Route: 048
     Dates: start: 20130917
  5. OMEPRAZOLE [Concomitant]
     Indication: GASTROOESOPHAGEAL REFLUX DISEASE
     Route: 065
  6. LIPITOR [Concomitant]
     Indication: HYPERLIPIDAEMIA
     Route: 065
  7. FLAX SEED OIL [Concomitant]
     Indication: NUTRITIONAL SUPPLEMENTATION
     Route: 065
  8. GARLIC [Concomitant]
     Indication: NUTRITIONAL SUPPLEMENTATION
     Route: 065
  9. VITAMIN E [Concomitant]
     Indication: VITAMIN SUPPLEMENTATION
     Dosage: 400 UNITS
     Route: 065
  10. VITAMIN C [Concomitant]
     Indication: VITAMIN SUPPLEMENTATION
     Route: 065
  11. VITAMIN B6 [Concomitant]
     Indication: VITAMIN SUPPLEMENTATION
     Route: 065
  12. VITAMIN B12 [Concomitant]
     Indication: VITAMIN SUPPLEMENTATION
     Route: 065
  13. CENTRUM SILVER WOMENS [Concomitant]
     Indication: VITAMIN SUPPLEMENTATION
     Route: 065
  14. CALCIUM +D [Concomitant]
     Indication: VITAMIN SUPPLEMENTATION
     Dosage: 500-125MG
     Route: 065
  15. FERROUS SULFATE [Concomitant]
     Indication: MINERAL SUPPLEMENTATION
     Dosage: 65
     Route: 065
  16. AZITHROMYCIN [Concomitant]
     Indication: PNEUMONIA
     Route: 065
     Dates: start: 2013

REACTIONS (8)
  - Encephalopathy [Recovered/Resolved]
  - Deep vein thrombosis [Recovering/Resolving]
  - Pneumonia [Recovered/Resolved]
  - Sepsis [Recovered/Resolved]
  - Renal failure acute [Unknown]
  - Atrial fibrillation [Recovered/Resolved]
  - Thrombocytopenia [Recovered/Resolved]
  - Cytomegalovirus colitis [Recovered/Resolved]
